FAERS Safety Report 11366082 (Version 1)
Quarter: 2015Q3

REPORT INFORMATION
  Report Type: Spontaneous
  Country: JP (occurrence: JP)
  Receive Date: 20150811
  Receipt Date: 20150811
  Transmission Date: 20151125
  Serious: Yes (Hospitalization)
  Sender: FDA-Public Use
  Company Number: PHHY2011JP83863

PATIENT
  Age: 81 Year
  Sex: Female
  Weight: 40 kg

DRUGS (10)
  1. REMINYL [Suspect]
     Active Substance: GALANTAMINE
     Dosage: 16 MG, UNK
     Route: 048
     Dates: start: 20110523, end: 20110908
  2. AMANTADINE [Suspect]
     Active Substance: AMANTADINE
     Indication: DEMENTIA
  3. DIART [Suspect]
     Active Substance: AZOSEMIDE
     Dosage: 60 MG, UNK
     Route: 048
     Dates: start: 20110531, end: 20110908
  4. DETRUSITOL [Suspect]
     Active Substance: TOLTERODINE TARTRATE
     Indication: PRODUCT USED FOR UNKNOWN INDICATION
     Dosage: 4 MG, QD
     Route: 065
     Dates: start: 20110809, end: 20110908
  5. AMANTADINE [Suspect]
     Active Substance: AMANTADINE
     Indication: PROPHYLAXIS
     Dosage: 200 MG, QD
     Route: 048
     Dates: start: 20100413, end: 20110908
  6. REMINYL [Suspect]
     Active Substance: GALANTAMINE
     Indication: PRODUCT USED FOR UNKNOWN INDICATION
     Dosage: 8 MG, QD
     Route: 048
     Dates: start: 20110513, end: 20110522
  7. TAMBOCOR [Concomitant]
     Active Substance: FLECAINIDE ACETATE
     Indication: PRODUCT USED FOR UNKNOWN INDICATION
     Dosage: 200 MG, UNK
     Route: 048
     Dates: start: 20110423, end: 20110908
  8. DIART [Suspect]
     Active Substance: AZOSEMIDE
     Indication: PRODUCT USED FOR UNKNOWN INDICATION
     Dosage: 30 MG, QD
     Route: 048
     Dates: start: 20110523, end: 20110530
  9. PINATOS [Suspect]
     Active Substance: IBUDILAST
     Indication: PRODUCT USED FOR UNKNOWN INDICATION
     Dosage: 30 MG, UNK
     Route: 048
     Dates: start: 20100316, end: 20110908
  10. PALGIN [Suspect]
     Active Substance: AMINOPYRINE\ANTIPYRINE\CAFFEINE\PHENACETIN
     Indication: PRODUCT USED FOR UNKNOWN INDICATION
     Dosage: 1 MG, QD
     Route: 048
     Dates: start: 20110318, end: 20110908

REACTIONS (23)
  - Corneal disorder [Recovering/Resolving]
  - Neurosis [None]
  - Persecutory delusion [None]
  - Masked facies [None]
  - Pyrexia [Recovering/Resolving]
  - Blood creatine phosphokinase increased [None]
  - Neuroleptic malignant syndrome [Recovered/Resolved]
  - Visual impairment [Recovering/Resolving]
  - Contusion [None]
  - Myoglobin urine present [None]
  - Hypochloraemia [Unknown]
  - Corneal oedema [Recovered/Resolved]
  - Weight decreased [None]
  - Parkinson^s disease [None]
  - Fall [None]
  - Dementia Alzheimer^s type [None]
  - Hallucination [Unknown]
  - Dizziness [None]
  - Pancreatitis [None]
  - Myoglobin blood increased [None]
  - Hyponatraemia [Unknown]
  - Vomiting [Unknown]
  - Gait disturbance [None]

NARRATIVE: CASE EVENT DATE: 201106
